FAERS Safety Report 7113319-0 (Version None)
Quarter: 2010Q4

REPORT INFORMATION
  Report Type: 
  Country: None (occurrence: None)
  Receive Date: 20101119
  Receipt Date: 20100923
  Transmission Date: 20110411
  Serious: No
  Sender: FDA-Public Use
  Company Number: A0878940A

PATIENT
  Age: 63 Year
  Sex: Female

DRUGS (11)
  1. WELLBUTRIN SR [Suspect]
     Indication: DEPRESSION
     Dosage: 150MG PER DAY
     Route: 048
     Dates: start: 20100202
  2. CYMBALTA [Concomitant]
  3. CRESTOR [Concomitant]
  4. XANAX [Concomitant]
  5. NEXIUM [Concomitant]
  6. STRATTERA [Concomitant]
  7. EVISTA [Concomitant]
  8. VITAMIN E [Concomitant]
  9. FISH OIL [Concomitant]
  10. CALCIUM [Concomitant]
  11. GLUCOSAMINE [Concomitant]

REACTIONS (3)
  - CONSTIPATION [None]
  - DRUG ADMINISTRATION ERROR [None]
  - FEELING ABNORMAL [None]
